FAERS Safety Report 9131033 (Version 1)
Quarter: 2013Q1

REPORT INFORMATION
  Report Type: Spontaneous
  Country: US (occurrence: US)
  Receive Date: 20130301
  Receipt Date: 20130301
  Transmission Date: 20140127
  Serious: Yes (Other)
  Sender: FDA-Public Use
  Company Number: US-COVIDIEN/TYCO HEALTHCARE/MALLINCKRODT-T201300974

PATIENT
  Age: 88 Year
  Sex: Male

DRUGS (1)
  1. MORPHINE [Suspect]
     Indication: PRODUCT USED FOR UNKNOWN INDICATION
     Dosage: UNK
     Dates: start: 201211

REACTIONS (7)
  - Psychotic disorder [Unknown]
  - Delusion [Unknown]
  - Speech disorder [Unknown]
  - Anger [Unknown]
  - Restlessness [Unknown]
  - Crying [Unknown]
  - Agitation [Unknown]
